FAERS Safety Report 7561891-9 (Version None)
Quarter: 2011Q2

REPORT INFORMATION
  Report Type: 
  Country: None (occurrence: None)
  Receive Date: 20110621
  Receipt Date: 20110608
  Transmission Date: 20111010
  Serious: Yes (Hospitalization)
  Sender: FDA-Public Use
  Company Number: PHHO2011CZ10395

PATIENT
  Sex: Female
  Weight: 65.2 kg

DRUGS (6)
  1. SANDOSTATIN LAR [Suspect]
     Indication: CARCINOID TUMOUR
     Dosage: 30 MG, UNK
     Dates: start: 20070504
  2. PLACEBO [Suspect]
     Indication: CARCINOID TUMOUR
     Dosage: DOUBLE BLIND
     Dates: start: 20100723, end: 20110518
  3. RAD 666 [Suspect]
     Indication: CARCINOID TUMOUR
     Dosage: 5 MG/DAY
     Dates: start: 20100723, end: 20110518
  4. KALNORMIN [Concomitant]
     Indication: HYPOKALAEMIA
     Dosage: UNK
     Dates: start: 20110107, end: 20110518
  5. SORBIFER DURULES [Concomitant]
     Indication: IRON DEFICIENCY ANAEMIA
     Dosage: UNK
     Dates: start: 20080407, end: 20110518
  6. ZADITEN [Concomitant]
     Indication: SEASONAL ALLERGY
     Dosage: UNK
     Dates: start: 20060101, end: 20110518

REACTIONS (1)
  - ABDOMINAL PAIN [None]
